FAERS Safety Report 18953572 (Version 1)
Quarter: 2021Q1

REPORT INFORMATION
  Report Type: Spontaneous
  Country: US (occurrence: US)
  Receive Date: 20210301
  Receipt Date: 20210301
  Transmission Date: 20210420
  Serious: Yes (Other)
  Sender: FDA-Public Use
  Company Number: None

PATIENT
  Sex: Female

DRUGS (2)
  1. GABAPENTIN 300MG AUROBINDO PHARMA [Suspect]
     Active Substance: GABAPENTIN
     Indication: HIV INFECTION
     Route: 048
     Dates: start: 20201109
  2. BUPROPION HCL ER 150MG SLATE RUN PHARMACEUTICALS [Suspect]
     Active Substance: BUPROPION HYDROCHLORIDE
     Indication: HIV INFECTION
     Route: 048
     Dates: start: 20201109

REACTIONS (2)
  - Oropharyngeal pain [None]
  - Ear pain [None]
